FAERS Safety Report 20231528 (Version 1)
Quarter: 2021Q4

REPORT INFORMATION
  Report Type: Spontaneous
  Country: AT (occurrence: AT)
  Receive Date: 20211227
  Receipt Date: 20211227
  Transmission Date: 20220303
  Serious: Yes (Congenital Anomaly)
  Sender: FDA-Public Use
  Company Number: AT-NOVARTISPH-NVSC2021AT292762

PATIENT

DRUGS (3)
  1. TOPIRAMATE [Suspect]
     Active Substance: TOPIRAMATE
     Indication: Foetal exposure during pregnancy
     Dosage: UNK
     Route: 064
     Dates: end: 2019
  2. LAMOTRIGINE [Suspect]
     Active Substance: LAMOTRIGINE
     Indication: Foetal exposure during pregnancy
     Dosage: UNK
     Route: 064
     Dates: end: 2019
  3. PERAMPANEL [Suspect]
     Active Substance: PERAMPANEL
     Indication: Foetal exposure during pregnancy
     Dosage: 6 MG, QD
     Route: 064
     Dates: end: 2019

REACTIONS (2)
  - Foetal exposure during pregnancy [Unknown]
  - Opitz trigonocephaly syndrome [Unknown]

NARRATIVE: CASE EVENT DATE: 20190101
